FAERS Safety Report 8555340-1 (Version None)
Quarter: 2012Q3

REPORT INFORMATION
  Report Type: 
  Country: None (occurrence: None)
  Receive Date: 20120731
  Receipt Date: 20110825
  Transmission Date: 20120928
  Serious: No
  Sender: FDA-Public Use
  Company Number: US-ASTRAZENECA-2011SE51145

PATIENT
  Age: 61 Year
  Sex: Male
  Weight: 86.2 kg

DRUGS (11)
  1. ASPIRIN [Concomitant]
  2. ZANTAC [Concomitant]
     Indication: GASTROOESOPHAGEAL REFLUX DISEASE
  3. SEROQUEL [Suspect]
     Route: 048
  4. LIPITOR [Concomitant]
     Indication: HYPERCHOLESTEROLAEMIA
  5. SEROQUEL [Suspect]
     Indication: BIPOLAR DISORDER
     Route: 048
  6. VITAMIN ZINC [Concomitant]
  7. LAMICDAL [Concomitant]
     Indication: MENTAL DISORDER
  8. NEURONGTIN [Concomitant]
     Indication: MENTAL DISORDER
  9. FLOMAX [Concomitant]
     Indication: PROSTATIC DISORDER
  10. OMEGA 3 SUPPLEMENT WITH VITAMIN E [Concomitant]
  11. WELLBUTRIN [Concomitant]
     Indication: MENTAL DISORDER

REACTIONS (2)
  - THERAPEUTIC RESPONSE UNEXPECTED [None]
  - FEELING DRUNK [None]
